FAERS Safety Report 21902246 (Version 1)
Quarter: 2023Q1

REPORT INFORMATION
  Report Type: Spontaneous
  Country: US (occurrence: US)
  Receive Date: 20230124
  Receipt Date: 20230124
  Transmission Date: 20230417
  Serious: Yes (Other)
  Sender: FDA-Public Use
  Company Number: US-ORGANON-O2301USA001322

PATIENT
  Sex: Female

DRUGS (13)
  1. FOLLISTIM AQ [Suspect]
     Active Substance: FOLLITROPIN
     Indication: Infertility female
     Dosage: STRENGTH: 600 IU/0.72ML 1=1, DOSE: 600 UNT/0.72ML. INJECT 150-300 UNITS UNDER THE SKIN (SUBCUTANEOUS
     Route: 058
     Dates: start: 20220930
  2. BOOSTRIX [Concomitant]
     Active Substance: TETANUS TOXOID, REDUCED DIPHTHERIA TOXOID AND ACELLULAR PERTUSSIS VACCINE, ADSORBED ANTIGENS
     Dosage: UNK
  3. BROMOCRIPTINE MESYLATE [Concomitant]
     Active Substance: BROMOCRIPTINE MESYLATE
     Dosage: UNK
  4. ENSKYCE [Concomitant]
     Active Substance: DESOGESTREL\ETHINYL ESTRADIOL
     Dosage: UNK
  5. GANIRELIX ACETATE [Concomitant]
     Active Substance: GANIRELIX ACETATE
     Dosage: FORMULATION: SOLUTION, STRENGTH: 250/0.5 (UNITS UNSPECIFIED)
  6. GANIRELIX ACETATE [Concomitant]
     Active Substance: GANIRELIX ACETATE
     Dosage: STRENGTH: 250 MCG SYR
  7. LETROZOLE [Concomitant]
     Active Substance: LETROZOLE
     Dosage: UNK
  8. MENOPUR [Concomitant]
     Active Substance: FOLLITROPIN\LUTEINIZING HORMONE
     Dosage: UNK
  9. MENOPUR [Concomitant]
     Active Substance: FOLLITROPIN\LUTEINIZING HORMONE
     Dosage: SINGLE DOSE VIAL (SDV) W/Q-CAP
  10. OVIDREL [Concomitant]
     Active Substance: CHORIOGONADOTROPIN ALFA
     Dosage: STRENGTH: 250 MCG/0.5ML SYR 1=1SYR
  11. PRENATAL [ASCORBIC ACID;CALCIUM;FOLIC ACID;IRON;NICOTINAMIDE;PYRIDOXIN [Concomitant]
     Dosage: UNK
  12. PROGESTERONE [Concomitant]
     Active Substance: PROGESTERONE
     Dosage: STRENGTH: 50MG/ML MULTI-DOSE VIAL (MDV) 10ML
  13. PROGESTERONE [Concomitant]
     Active Substance: PROGESTERONE
     Dosage: UNK

REACTIONS (1)
  - Ovarian hyperstimulation syndrome [Unknown]
